FAERS Safety Report 13460504 (Version 8)
Quarter: 2017Q4

REPORT INFORMATION
  Report Type: Spontaneous
  Country: US (occurrence: US)
  Receive Date: 20170420
  Receipt Date: 20171229
  Transmission Date: 20180320
  Serious: Yes (Hospitalization, Other)
  Sender: FDA-Public Use
  Company Number: US-PFIZER INC-2017172276

PATIENT
  Age: 78 Year
  Sex: Female

DRUGS (2)
  1. XELJANZ [Suspect]
     Active Substance: TOFACITINIB CITRATE
     Dosage: 5 MG, UNK
     Dates: start: 201704
  2. XELJANZ [Suspect]
     Active Substance: TOFACITINIB CITRATE
     Dosage: 5 MG, 2X/DAY
     Dates: start: 201703

REACTIONS (9)
  - Pain [Not Recovered/Not Resolved]
  - Drug ineffective [Unknown]
  - Hypersensitivity [Unknown]
  - Nausea [Unknown]
  - Blood pressure decreased [Unknown]
  - Foot fracture [Unknown]
  - Abdominal pain [Unknown]
  - Condition aggravated [Unknown]
  - Gastrointestinal haemorrhage [Unknown]

NARRATIVE: CASE EVENT DATE: 2017
